FAERS Safety Report 5246604-8 (Version None)
Quarter: 2007Q1

REPORT INFORMATION
  Report Type: 
  Country: None (occurrence: None)
  Receive Date: 20070222
  Receipt Date: 20070222
  Transmission Date: 20070707
  Serious: Yes (Hospitalization)
  Sender: FDA-Public Use
  Company Number: None

PATIENT
  Age: 45 Year
  Sex: Female
  Weight: 75 kg

DRUGS (22)
  1. CUBICIN [Suspect]
     Indication: STAPHYLOCOCCAL SEPSIS
     Dosage: 450 MG -6 MG/KG/DAY-  EVERY 24 HOURS  IV
     Route: 042
     Dates: start: 20070202, end: 20070217
  2. AQUAPHOR [Concomitant]
  3. BENADRYL [Concomitant]
  4. DILAUDID [Concomitant]
  5. DULCOLAX [Concomitant]
  6. ELAVIL [Concomitant]
  7. EPOGEN [Concomitant]
  8. FOLATE [Concomitant]
  9. LASIX [Concomitant]
  10. METOPROLOL SUCCINATE [Concomitant]
  11. LORTAB [Concomitant]
  12. MEGACE [Concomitant]
  13. INSULIN [Concomitant]
  14. SALINE NASAL SPRAY [Concomitant]
  15. PENTASA [Concomitant]
  16. PREVACID [Concomitant]
  17. SYNTHROID [Concomitant]
  18. MULTIPLE VITAMIN [Concomitant]
  19. TYLENOL [Concomitant]
  20. XANAX [Concomitant]
  21. ZOFRAN [Concomitant]
  22. ZOMIG [Concomitant]

REACTIONS (3)
  - BLOOD CREATINE PHOSPHOKINASE INCREASED [None]
  - MUSCLE SPASMS [None]
  - MYALGIA [None]
